FAERS Safety Report 8189318-7 (Version None)
Quarter: 2012Q1

REPORT INFORMATION
  Report Type: 
  Country: None (occurrence: None)
  Receive Date: 20120302
  Receipt Date: 20120219
  Transmission Date: 20120608
  Serious: Yes (Life-Threatening, Hospitalization)
  Sender: FDA-Public Use
  Company Number: GB-DEXPHARM-20120050

PATIENT
  Age: 79 Year
  Sex: Female
  Weight: 55 kg

DRUGS (6)
  1. DOXAZOSIN MESYLATE [Concomitant]
  2. SIMVASTATIN [Concomitant]
  3. ADALAT CC [Concomitant]
  4. RAMIPRIL [Concomitant]
  5. OMEPRAZOLE [Suspect]
     Indication: DYSPEPSIA
     Dosage: 20 MG MILLIGRAM(S) ORAL
     Route: 048
     Dates: start: 20111118, end: 20120110
  6. ASPIRIN [Concomitant]

REACTIONS (2)
  - TUBULOINTERSTITIAL NEPHRITIS [None]
  - RENAL FAILURE ACUTE [None]
